FAERS Safety Report 8848220 (Version 4)
Quarter: 2012Q4

REPORT INFORMATION
  Report Type: 
  Country: US (occurrence: US)
  Receive Date: 20121018
  Receipt Date: 20121219
  Transmission Date: 20130627
  Serious: Yes (Hospitalization, Other)
  Sender: FDA-Public Use
  Company Number: US-PFIZER INC-2012259049

PATIENT
  Age: 63 Year
  Sex: Female
  Weight: 90.7 kg

DRUGS (4)
  1. NORVASC [Suspect]
     Indication: BLOOD PRESSURE HIGH
     Dosage: 5 mg, daily
     Route: 048
  2. NORVASC [Suspect]
     Dosage: 10 mg, daily
  3. JANUVIA [Concomitant]
     Indication: DIABETES
     Dosage: 100 mg, daily
  4. NOVOLOG [Concomitant]
     Indication: DIABETES
     Dosage: 50 IU in morning, 60 IU at night

REACTIONS (1)
  - Breast cancer female [Recovering/Resolving]
